FAERS Safety Report 10961181 (Version 1)
Quarter: 2015Q1

REPORT INFORMATION
  Report Type: Spontaneous
  Country: GB (occurrence: None)
  Receive Date: 20150325
  Receipt Date: 20150325
  Transmission Date: 20150721
  Serious: Yes (Hospitalization, Disabling)
  Sender: FDA-Public Use
  Company Number: 2792341

PATIENT
  Age: 71 Year
  Sex: Female

DRUGS (8)
  1. SIMVASTATIN. [Concomitant]
     Active Substance: SIMVASTATIN
  2. CAPECITABINE. [Suspect]
     Active Substance: CAPECITABINE
     Indication: METASTASES TO LUNG
     Dosage: 750 MG MILLIGRAM(S), 2 DAY
     Route: 048
     Dates: start: 20150225, end: 20150225
  3. OXALIPLATIN. [Suspect]
     Active Substance: OXALIPLATIN
     Indication: METASTASES TO LUNG
     Route: 042
     Dates: start: 20150225
  4. LEVOTHYROXINE [Concomitant]
     Active Substance: LEVOTHYROXINE
  5. PIOGLITAZONE [Concomitant]
     Active Substance: PIOGLITAZONE
  6. PARACETAMOL [Concomitant]
     Active Substance: ACETAMINOPHEN
  7. QUININE BISULFATE [Concomitant]
     Active Substance: QUININE BISULFATE
  8. METFORMIN [Concomitant]
     Active Substance: METFORMIN HYDROCHLORIDE

REACTIONS (4)
  - Paraesthesia [None]
  - Dizziness [None]
  - Fall [None]
  - Femoral neck fracture [None]

NARRATIVE: CASE EVENT DATE: 20150225
